FAERS Safety Report 22530699 (Version 3)
Quarter: 2025Q2

REPORT INFORMATION
  Report Type: Spontaneous
  Country: US (occurrence: US)
  Receive Date: 20230607
  Receipt Date: 20250521
  Transmission Date: 20250717
  Serious: No
  Sender: SANOFI AVENTIS
  Company Number: US-SA-SAC20230605000303

PATIENT
  Age: 69 Year
  Sex: Female

DRUGS (8)
  1. DUPIXENT [Suspect]
     Active Substance: DUPILUMAB
     Indication: Dermatitis atopic
     Dosage: 300 MG, QOW
     Route: 058
     Dates: start: 20240131
  2. DUPILUMAB [Suspect]
     Active Substance: DUPILUMAB
     Dosage: 300 MG, QOW
     Route: 058
     Dates: start: 20240131
  3. SIMVASTATIN [Concomitant]
     Active Substance: SIMVASTATIN
  4. SUMATRIPTAN [Concomitant]
     Active Substance: SUMATRIPTAN
  5. GABAPENTIN [Concomitant]
     Active Substance: GABAPENTIN
  6. DULOXETINE [Concomitant]
     Active Substance: DULOXETINE
  7. DULOXETINE [Concomitant]
     Active Substance: DULOXETINE
  8. SUMATRIPTAN [Concomitant]
     Active Substance: SUMATRIPTAN

REACTIONS (6)
  - Paraesthesia [Unknown]
  - Skin irritation [Unknown]
  - Discomfort [Unknown]
  - Sleep disorder due to a general medical condition [Unknown]
  - Rash [Unknown]
  - Dermatitis atopic [Not Recovered/Not Resolved]

NARRATIVE: CASE EVENT DATE: 20240101
